FAERS Safety Report 7865203-2 (Version None)
Quarter: 2011Q4

REPORT INFORMATION
  Report Type: 
  Country: None (occurrence: None)
  Receive Date: 20111028
  Receipt Date: 20101029
  Transmission Date: 20120403
  Serious: No
  Sender: FDA-Public Use
  Company Number: US-GLAXOSMITHKLINE-A0889723A

PATIENT
  Age: 80 Year
  Sex: Female

DRUGS (7)
  1. OXYGEN [Concomitant]
  2. PREDNISONE [Concomitant]
  3. INSULIN [Concomitant]
  4. XOPENEX [Concomitant]
  5. ADVAIR DISKUS 100/50 [Suspect]
     Indication: EMPHYSEMA
     Dosage: 1PUFF TWICE PER DAY
     Route: 055
     Dates: start: 20080101
  6. LASIX [Concomitant]
  7. ATENOLOL [Concomitant]

REACTIONS (3)
  - DRUG INEFFECTIVE [None]
  - DYSPNOEA [None]
  - PRODUCT QUALITY ISSUE [None]
